FAERS Safety Report 5772231-X (Version None)
Quarter: 2008Q2

REPORT INFORMATION
  Report Type: 
  Country: None (occurrence: None)
  Receive Date: 20080610
  Receipt Date: 20080529
  Transmission Date: 20081010
  Serious: Yes (Hospitalization)
  Sender: FDA-Public Use
  Company Number: VNL_01111_2008

PATIENT
  Sex: Female

DRUGS (9)
  1. APOKYN [Suspect]
     Indication: PARKINSON'S DISEASE
     Dosage: 0.35 ML FREQUENCY UNKNOWN SUBCUTANEOUS, 0.35 ML TID SUBCUTANEOUS, 0.35 ML QD SUBCUTANEOUS
     Route: 058
     Dates: start: 20080301, end: 20080524
  2. APOKYN [Suspect]
     Indication: PARKINSON'S DISEASE
     Dosage: 0.35 ML FREQUENCY UNKNOWN SUBCUTANEOUS, 0.35 ML TID SUBCUTANEOUS, 0.35 ML QD SUBCUTANEOUS
     Route: 058
     Dates: start: 20080525, end: 20080525
  3. APOKYN [Suspect]
     Indication: PARKINSON'S DISEASE
     Dosage: 0.35 ML FREQUENCY UNKNOWN SUBCUTANEOUS, 0.35 ML TID SUBCUTANEOUS, 0.35 ML QD SUBCUTANEOUS
     Route: 058
     Dates: start: 20080526
  4. SINEMET [Concomitant]
  5. SINEMET CR [Concomitant]
  6. COMTAN [Concomitant]
  7. ATIVAN [Concomitant]
  8. AMBIEN [Concomitant]
  9. REMERON [Concomitant]

REACTIONS (7)
  - CONSCIOUSNESS FLUCTUATING [None]
  - DYSARTHRIA [None]
  - GASTROINTESTINAL DISORDER [None]
  - GASTROINTESTINAL HYPOMOTILITY [None]
  - HYPOTENSION [None]
  - INCOHERENT [None]
  - VOMITING [None]
